FAERS Safety Report 16436741 (Version 1)
Quarter: 2019Q2

REPORT INFORMATION
  Report Type: Report from Study
  Country: IT (occurrence: IT)
  Receive Date: 20190614
  Receipt Date: 20190614
  Transmission Date: 20190711
  Serious: Yes (Other)
  Sender: FDA-Public Use
  Company Number: IT-TEVA-2019-IT-1062496

PATIENT
  Age: 33 Year
  Sex: Female

DRUGS (1)
  1. AZITHROMYCIN DIHYDRATE. [Suspect]
     Active Substance: AZITHROMYCIN DIHYDRATE
     Indication: TRACHEITIS
     Dosage: 500MG PER DAY
     Route: 048
     Dates: start: 20190524, end: 20190524

REACTIONS (2)
  - Abdominal pain upper [Recovered/Resolved]
  - Gastrointestinal pain [Recovered/Resolved]

NARRATIVE: CASE EVENT DATE: 20190524
